FAERS Safety Report 7729260-6 (Version None)
Quarter: 2011Q3

REPORT INFORMATION
  Report Type: 
  Country: None (occurrence: None)
  Receive Date: 20110906
  Receipt Date: 20110902
  Transmission Date: 20111222
  Serious: Yes (Disabling)
  Sender: FDA-Public Use
  Company Number: US-PFIZER INC-2011206110

PATIENT
  Sex: Female
  Weight: 74.83 kg

DRUGS (8)
  1. ARTHROTEC [Suspect]
     Indication: ARTHRITIS
     Dosage: 75 MG, 1X/DAY
     Dates: start: 20110101, end: 20110801
  2. LISINOPRIL [Concomitant]
     Indication: BLOOD PRESSURE ABNORMAL
     Dosage: 10MG TWO AT A TIME, DAILY
  3. IBUPROFEN [Suspect]
     Indication: ARTHRITIS
     Dosage: 200 MG, 3X/DAY
     Dates: start: 20110101
  4. ALLOPURINOL [Concomitant]
     Indication: GOUT
     Dosage: 300 MG, 1X/DAY
  5. ZOLPIDEM TARTRATE [Concomitant]
     Indication: SLEEP DISORDER
     Dosage: 10 MG, AS NEEDED
  6. SIMVASTATIN [Concomitant]
     Indication: BLOOD CHOLESTEROL ABNORMAL
     Dosage: 20 MG, 1X/DAY
  7. ACETYLSALICYLIC ACID [Concomitant]
     Dosage: 81 MG, 1X/DAY
  8. TYLENOL-500 [Concomitant]
     Indication: BACK PAIN
     Dosage: UNK

REACTIONS (3)
  - DIARRHOEA [None]
  - GASTROINTESTINAL DISORDER [None]
  - FLATULENCE [None]
